FAERS Safety Report 16022651 (Version 6)
Quarter: 2022Q2

REPORT INFORMATION
  Report Type: Spontaneous
  Country: GR (occurrence: GR)
  Receive Date: 20190301
  Receipt Date: 20220506
  Transmission Date: 20220720
  Serious: Yes (Other)
  Sender: FDA-Public Use
  Company Number: GR-PFIZER INC-2019070467

PATIENT
  Age: 37 Year
  Sex: Male

DRUGS (9)
  1. DAPTOMYCIN [Suspect]
     Active Substance: DAPTOMYCIN
     Indication: Antibiotic therapy
     Dosage: 500 MG PER Q48H
     Route: 042
  2. VANCOMYCIN HYDROCHLORIDE [Suspect]
     Active Substance: VANCOMYCIN HYDROCHLORIDE
     Indication: Staphylococcal infection
     Dosage: UNK
  3. PIPERACILLIN SODIUM\TAZOBACTAM SODIUM [Suspect]
     Active Substance: PIPERACILLIN SODIUM\TAZOBACTAM SODIUM
     Indication: Antibiotic therapy
     Dosage: 2.25 G, 3X/DAY (PER 8 HOURS) (6.75MG DAILY)
     Route: 042
  4. CLOXACILLIN [Suspect]
     Active Substance: CLOXACILLIN
     Indication: Antibiotic therapy
     Dosage: 500 MG, Q4H
     Route: 042
  5. CLOXACILLIN [Suspect]
     Active Substance: CLOXACILLIN
     Dosage: 2 G, Q4H
     Route: 042
  6. MICAFUNGIN [Suspect]
     Active Substance: MICAFUNGIN
     Indication: Antibiotic therapy
     Dosage: 50 MG, 1X/DAY (PER 24 HOURS)
     Route: 042
  7. RIFAMPIN [Suspect]
     Active Substance: RIFAMPIN
     Indication: Antibiotic therapy
     Dosage: 600 MG, 1X/DAY(PER 24 H) (600 MG, Q24H )
     Route: 042
  8. CEFTRIAXONE [Suspect]
     Active Substance: CEFTRIAXONE
     Indication: Antibiotic therapy
     Dosage: UNK
  9. LINEZOLID [Suspect]
     Active Substance: LINEZOLID
     Indication: Antibiotic therapy
     Dosage: 600 MG, 2X/DAY (PER 12 HOURS(Q12H))
     Route: 042

REACTIONS (8)
  - Endocarditis bacterial [Unknown]
  - Condition aggravated [Unknown]
  - Sleep disorder [Unknown]
  - Restlessness [Unknown]
  - Oliguria [Unknown]
  - Dyspnoea [Unknown]
  - Oedema peripheral [Unknown]
  - Oxygen saturation decreased [Unknown]
